FAERS Safety Report 10879214 (Version 1)
Quarter: 2015Q1

REPORT INFORMATION
  Report Type: Spontaneous
  Country: US (occurrence: US)
  Receive Date: 20150302
  Receipt Date: 20150302
  Transmission Date: 20150721
  Serious: Yes (Death)
  Sender: FDA-Public Use
  Company Number: US-APOTEX-2015AP006341

PATIENT

DRUGS (6)
  1. FLUOXETINE ORAL SOLUTION USP [Suspect]
     Active Substance: FLUOXETINE\FLUOXETINE HYDROCHLORIDE
     Route: 065
  2. CODEINE [Suspect]
     Active Substance: CODEINE
     Route: 065
  3. HEROIN [Suspect]
     Active Substance: DIACETYLMORPHINE
     Route: 051
  4. COCAINE [Suspect]
     Active Substance: COCAINE
     Route: 051
  5. CLONAZEPAM TABLETS USP [Suspect]
     Active Substance: CLONAZEPAM
     Route: 065
  6. PAROXETINE HYDROCHLORIDE. [Suspect]
     Active Substance: PAROXETINE HYDROCHLORIDE
     Route: 065

REACTIONS (1)
  - Drug abuse [Fatal]
